FAERS Safety Report 12704430 (Version 1)
Quarter: 2016Q3

REPORT INFORMATION
  Report Type: Spontaneous
  Country: US (occurrence: US)
  Receive Date: 20160831
  Receipt Date: 20160831
  Transmission Date: 20161109
  Serious: No
  Sender: FDA-Public Use
  Company Number: US-SA-2015SA186512

PATIENT
  Age: 66 Year
  Sex: Female

DRUGS (2)
  1. ZALTRAP [Suspect]
     Active Substance: ZIV-AFLIBERCEPT
     Indication: COLON CANCER
     Dosage: FREQUENCY: Q 2 WEEKS
     Route: 042
     Dates: start: 20151027, end: 20151027
  2. ZALTRAP [Suspect]
     Active Substance: ZIV-AFLIBERCEPT
     Indication: COLON CANCER
     Dosage: FREQUENCY: Q 2 WEEKS
     Route: 042
     Dates: start: 20151110, end: 20151110

REACTIONS (1)
  - Bone pain [Recovered/Resolved]
